FAERS Safety Report 4790982-0 (Version None)
Quarter: 2005Q4

REPORT INFORMATION
  Report Type: 
  Country: None (occurrence: None)
  Receive Date: 20051005
  Receipt Date: 20050919
  Transmission Date: 20060501
  Serious: Yes (Death, Hospitalization)
  Sender: FDA-Public Use
  Company Number: DSA_70763_2005

PATIENT
  Age: 20 Month
  Sex: Male

DRUGS (1)
  1. METHADONE [Suspect]
     Dosage: DF PO
     Route: 048

REACTIONS (9)
  - ACCIDENTAL EXPOSURE [None]
  - BRAIN HERNIATION [None]
  - DEPRESSED LEVEL OF CONSCIOUSNESS [None]
  - GAZE PALSY [None]
  - HYPOPNOEA [None]
  - HYPOXIC ENCEPHALOPATHY [None]
  - MIOSIS [None]
  - OVERDOSE [None]
  - SOMNOLENCE [None]
